FAERS Safety Report 18367297 (Version 2)
Quarter: 2020Q4

REPORT INFORMATION
  Report Type: Report from Study
  Country: US (occurrence: US)
  Receive Date: 20201009
  Receipt Date: 20201022
  Transmission Date: 20210114
  Serious: Yes (Death, Hospitalization, Other)
  Sender: FDA-Public Use
  Company Number: US-ASTRAZENECA-2020SF29320

PATIENT
  Age: 79 Year
  Sex: Male
  Weight: 72.6 kg

DRUGS (2)
  1. TAGRISSO [Suspect]
     Active Substance: OSIMERTINIB
     Indication: PULMONARY MASS
     Dosage: DAILY
     Route: 048
     Dates: start: 2020, end: 202009
  2. TAGRISSO [Suspect]
     Active Substance: OSIMERTINIB
     Indication: NON-SMALL CELL LUNG CANCER RECURRENT
     Dosage: DAILY
     Route: 048
     Dates: start: 2020, end: 202009

REACTIONS (5)
  - Drug ineffective [Unknown]
  - Respiratory distress [Fatal]
  - Intestinal obstruction [Fatal]
  - Malignant neoplasm progression [Fatal]
  - Pneumonitis [Fatal]

NARRATIVE: CASE EVENT DATE: 2020
